FAERS Safety Report 9152782 (Version 2)
Quarter: 2013Q2

REPORT INFORMATION
  Report Type: Report from Study
  Country: US (occurrence: US)
  Receive Date: 20130308
  Receipt Date: 20130408
  Transmission Date: 20140414
  Serious: Yes (Other)
  Sender: FDA-Public Use
  Company Number: US-US-EMD SERONO, INC.-7197430

PATIENT
  Sex: Male

DRUGS (3)
  1. REBIF [Suspect]
     Indication: MULTIPLE SCLEROSIS
     Route: 058
     Dates: start: 20120316
  2. IBUPROFEN [Suspect]
     Indication: INFLUENZA LIKE ILLNESS
  3. IBUPROFEN [Suspect]
     Indication: PREMEDICATION

REACTIONS (2)
  - Renal failure [Recovered/Resolved]
  - Influenza like illness [Not Recovered/Not Resolved]
